FAERS Safety Report 9450189 (Version 1)
Quarter: 2013Q3

REPORT INFORMATION
  Report Type: Spontaneous
  Country: FR (occurrence: FR)
  Receive Date: 20130809
  Receipt Date: 20130809
  Transmission Date: 20140515
  Serious: Yes (Hospitalization)
  Sender: FDA-Public Use
  Company Number: FR-009507513-1308FRA000253

PATIENT
  Age: 77 Year
  Sex: Male

DRUGS (5)
  1. EZETROL [Suspect]
     Dosage: 10 MG, QD
     Route: 048
  2. SINTROM [Suspect]
     Dosage: UNK
     Route: 048
     Dates: start: 2011
  3. COAPROVEL [Concomitant]
     Dosage: 1 DF, QD
     Dates: start: 2011
  4. CORDARONE [Concomitant]
     Dosage: 200 MG, QD
     Route: 048
     Dates: start: 2011
  5. TENORMINE [Concomitant]
     Dosage: 50 MG, QD
     Route: 048
     Dates: start: 2011

REACTIONS (1)
  - Oesophageal ulcer haemorrhage [Recovered/Resolved]
